FAERS Safety Report 18285563 (Version 4)
Quarter: 2020Q4

REPORT INFORMATION
  Report Type: Report from Study
  Country: US (occurrence: US)
  Receive Date: 20200918
  Receipt Date: 20201110
  Transmission Date: 20210113
  Serious: Yes (Hospitalization)
  Sender: FDA-Public Use
  Company Number: US-JNJFOC-A-NJ2019-198827

PATIENT
  Age: 71 Year
  Sex: Male
  Weight: 61.29 kg

DRUGS (13)
  1. OPSUMIT [Suspect]
     Active Substance: MACITENTAN
     Dosage: 10 MG, QD
     Route: 048
  2. METOPROLOL. [Concomitant]
     Active Substance: METOPROLOL
     Dosage: 25 MG, QD
  3. COUMADIN [Concomitant]
     Active Substance: WARFARIN SODIUM
     Dosage: 5 MG, QD
  4. ALLOPURINOL. [Concomitant]
     Active Substance: ALLOPURINOL
     Dosage: 100 MG, QD
  5. VITAMIN D2 [Concomitant]
     Active Substance: ERGOCALCIFEROL
     Dosage: 25 MG, Q1WEEK
  6. SILDENAFIL CITRATE. [Concomitant]
     Active Substance: SILDENAFIL CITRATE
     Dates: end: 20201024
  7. ORENITRAM [Suspect]
     Active Substance: TREPROSTINIL
     Indication: PRODUCT USED FOR UNKNOWN INDICATION
     Route: 065
     Dates: end: 20201024
  8. GLIPIZIDE. [Concomitant]
     Active Substance: GLIPIZIDE
     Dosage: 5 MG, BID
  9. MITIGARE [Concomitant]
     Active Substance: COLCHICINE
     Dosage: 0.06 MG, QD
  10. OPSUMIT [Suspect]
     Active Substance: MACITENTAN
     Indication: PULMONARY ARTERIAL HYPERTENSION
     Dosage: 10 MG, QD
     Route: 048
     Dates: start: 20191106, end: 20201024
  11. REVATIO [Concomitant]
     Active Substance: SILDENAFIL CITRATE
  12. LIPITOR [Concomitant]
     Active Substance: ATORVASTATIN CALCIUM
     Dosage: 10 MG, QD
  13. WARFARIN [Concomitant]
     Active Substance: WARFARIN

REACTIONS (23)
  - Swelling [Unknown]
  - Skin exfoliation [Unknown]
  - Unevaluable event [Unknown]
  - Weight decreased [Recovered/Resolved]
  - Decreased appetite [Recovered/Resolved]
  - Haemoglobin decreased [Unknown]
  - Dyspnoea [Recovered/Resolved]
  - Cardiac output increased [Recovered/Resolved]
  - Chronic obstructive pulmonary disease [Unknown]
  - Therapy non-responder [Unknown]
  - Oedema [Recovered/Resolved]
  - Anaemia [Recovering/Resolving]
  - Fatigue [Unknown]
  - Condition aggravated [Unknown]
  - Renal impairment [Unknown]
  - Pulmonary hypertension [Not Recovered/Not Resolved]
  - Fluid retention [Unknown]
  - Transfusion [Recovering/Resolving]
  - Oxygen saturation decreased [Unknown]
  - Dry skin [Unknown]
  - Cardiac failure congestive [Unknown]
  - Hypokinesia [Unknown]
  - Dyspnoea [Unknown]

NARRATIVE: CASE EVENT DATE: 201911
